FAERS Safety Report 13575094 (Version 4)
Quarter: 2017Q3

REPORT INFORMATION
  Report Type: Report from Study
  Country: None (occurrence: KR)
  Receive Date: 20170523
  Receipt Date: 20170707
  Transmission Date: 20171127
  Serious: Yes (Hospitalization)
  Sender: FDA-Public Use
  Company Number: KR-ABBVIE-17K-090-1985013-00

PATIENT
  Age: 17 Year
  Sex: Male
  Weight: 52.5 kg

DRUGS (10)
  1. HUMIRA [Suspect]
     Active Substance: ADALIMUMAB
     Indication: CROHN^S DISEASE
     Dosage: 3 TIMES
     Route: 058
     Dates: start: 20161028, end: 20161109
  2. PETHIDINE [Concomitant]
     Active Substance: MEPERIDINE
     Indication: PAIN MANAGEMENT
     Route: 042
     Dates: start: 20170118, end: 20170124
  3. HUMIRA [Suspect]
     Active Substance: ADALIMUMAB
     Route: 058
     Dates: start: 20161123, end: 20170117
  4. AZATHIOPRINE. [Concomitant]
     Active Substance: AZATHIOPRINE
     Indication: CROHN^S DISEASE
     Route: 048
     Dates: start: 20160908
  5. METRONIDAZOL [Concomitant]
     Active Substance: METRONIDAZOLE
     Indication: INTESTINAL RESECTION
     Route: 042
     Dates: start: 20170120, end: 20170131
  6. CEFAZOLIN [Concomitant]
     Active Substance: CEFAZOLIN
     Indication: INTESTINAL RESECTION
     Route: 042
     Dates: start: 20170117, end: 20170120
  7. HUMIRA [Suspect]
     Active Substance: ADALIMUMAB
     Route: 058
     Dates: start: 20170206
  8. MESALAZINE [Concomitant]
     Active Substance: MESALAMINE
     Indication: CROHN^S DISEASE
     Route: 048
     Dates: start: 20160908
  9. PETHIDINE [Concomitant]
     Active Substance: MEPERIDINE
     Indication: GASTRITIS PROPHYLAXIS
     Route: 042
     Dates: start: 20170118, end: 20170128
  10. MEROPENEM. [Concomitant]
     Active Substance: MEROPENEM
     Indication: SEPSIS
     Route: 042
     Dates: start: 20170123, end: 20170131

REACTIONS (1)
  - Intestinal obstruction [Recovered/Resolved]

NARRATIVE: CASE EVENT DATE: 20161114
